FAERS Safety Report 15060561 (Version 2)
Quarter: 2019Q1

REPORT INFORMATION
  Report Type: Spontaneous
  Country: FR (occurrence: FR)
  Receive Date: 20180625
  Receipt Date: 20190326
  Transmission Date: 20190417
  Serious: Yes (Hospitalization, Other)
  Sender: FDA-Public Use
  Company Number: FR-PFIZER INC-2018160596

PATIENT
  Age: 46 Year
  Sex: Male
  Weight: 66 kg

DRUGS (5)
  1. CEFOTAXIME [Suspect]
     Active Substance: CEFOTAXIME SODIUM
     Dosage: 6 G, 1X/DAY
     Route: 042
     Dates: start: 20180204, end: 20180205
  2. CIFLOX [CIPROFLOXACIN] [Suspect]
     Active Substance: CIPROFLOXACIN
     Dosage: 1000 MG, 1X/DAY
     Route: 048
     Dates: start: 20180204, end: 20180205
  3. MALACEF [Suspect]
     Active Substance: ARTESUNATE
     Indication: MALARIA
     Dosage: 180 MG, 1X/DAY
     Route: 042
     Dates: start: 20180204, end: 20180206
  4. TAZOCILLINE [Suspect]
     Active Substance: PIPERACILLIN SODIUM\TAZOBACTAM SODIUM
     Dosage: 16 G, 1X/DAY
     Route: 042
     Dates: start: 20180209, end: 20180216
  5. RIAMET [Suspect]
     Active Substance: ARTEMETHER\LUMEFANTRINE
     Indication: MALARIA
     Dosage: UNK, DAILY (2 UNKNOWN UNIT)
     Route: 048
     Dates: start: 20180207, end: 20180210

REACTIONS (2)
  - Coombs positive haemolytic anaemia [Recovering/Resolving]
  - Pancytopenia [Recovering/Resolving]

NARRATIVE: CASE EVENT DATE: 201802
